FAERS Safety Report 9638817 (Version 2)
Quarter: 2013Q4

REPORT INFORMATION
  Report Type: Spontaneous
  Country: US (occurrence: US)
  Receive Date: 20131022
  Receipt Date: 20131022
  Transmission Date: 20140711
  Serious: No
  Sender: FDA-Public Use
  Company Number: US-BRISTOL-MYERS SQUIBB COMPANY-19163674

PATIENT
  Age: 63 Year
  Sex: Male
  Weight: 99.77 kg

DRUGS (4)
  1. ELIQUIS [Suspect]
     Indication: ATRIAL FIBRILLATION
     Dosage: LAST DOSE: 31JUL13
     Route: 048
  2. ZOLPIDEM [Concomitant]
  3. BABY ASPIRIN [Concomitant]
  4. IRON SUPPLEMENT [Concomitant]

REACTIONS (1)
  - Drug dose omission [Unknown]
